FAERS Safety Report 23962230 (Version 1)
Quarter: 2024Q2

REPORT INFORMATION
  Report Type: Spontaneous
  Country: BD (occurrence: BD)
  Receive Date: 20240611
  Receipt Date: 20240611
  Transmission Date: 20240716
  Serious: Yes (Hospitalization, Other)
  Sender: FDA-Public Use
  Company Number: BD-SUN PHARMACEUTICAL INDUSTRIES LTD-2024R1-450576

PATIENT
  Age: 19 Year
  Sex: Female
  Weight: 20 kg

DRUGS (6)
  1. AMPHOTERICIN B [Suspect]
     Active Substance: AMPHOTERICIN B
     Indication: Visceral leishmaniasis
     Dosage: 5 MILLIGRAM/KILOGRAM, SINGLE DOSE
     Route: 065
  2. AMPHOTERICIN B [Suspect]
     Active Substance: AMPHOTERICIN B
     Dosage: 10 MILLIGRAM/KILOGRAM BODY WEIGHT FOR TWO CONSECUTIVE DAYS
     Route: 065
     Dates: start: 202110
  3. AMPHOTERICIN B [Suspect]
     Active Substance: AMPHOTERICIN B
     Dosage: 3 MILLIGRAM/KILOGRAM BODY WEIGHT
     Route: 065
  4. MILTEFOSINE [Suspect]
     Active Substance: MILTEFOSINE
     Indication: Visceral leishmaniasis
     Dosage: 60 MILLIGRAM IN TWO DIVIDED DOSES
     Route: 048
  5. MILTEFOSINE [Suspect]
     Active Substance: MILTEFOSINE
     Dosage: 2.5 MILLIGRAM/KILOGRAM, DAILY, BODY WEIGHT
     Route: 048
     Dates: start: 202110
  6. MILTEFOSINE [Suspect]
     Active Substance: MILTEFOSINE
     Dosage: 2.5 MILLIGRAM/KILOGRAM, DAILY, BODY WEIGHT
     Route: 048

REACTIONS (4)
  - Disease recurrence [Unknown]
  - Drug ineffective [Unknown]
  - Hypokalaemia [Recovering/Resolving]
  - Toxicity to various agents [Unknown]

NARRATIVE: CASE EVENT DATE: 20211001
